FAERS Safety Report 5001733-9 (Version None)
Quarter: 2006Q2

REPORT INFORMATION
  Report Type: 
  Country: None (occurrence: None)
  Receive Date: 20060515
  Receipt Date: 20060306
  Transmission Date: 20061013
  Serious: Yes (Life-Threatening, Hospitalization)
  Sender: FDA-Public Use
  Company Number: DE-AMGEN-UK171582

PATIENT
  Sex: Male
  Weight: 92 kg

DRUGS (9)
  1. NEUPOGEN [Suspect]
     Indication: CHEMOTHERAPY
     Route: 058
     Dates: start: 20060117, end: 20060131
  2. EPOGEN [Concomitant]
     Route: 065
     Dates: start: 20060113, end: 20060131
  3. NATULAN [Concomitant]
     Route: 065
     Dates: start: 20060124, end: 20060130
  4. ENDOXAN [Concomitant]
     Route: 065
     Dates: start: 20060124, end: 20060124
  5. ADRIBLASTIN [Concomitant]
     Route: 065
     Dates: start: 20060124, end: 20060124
  6. ETOPOSIDE [Concomitant]
     Route: 065
     Dates: start: 20060124, end: 20060124
  7. DECORTIN-H [Concomitant]
     Route: 065
     Dates: start: 20060124, end: 20060130
  8. BLEOMYCIN [Concomitant]
     Route: 065
  9. VINCRISTINE [Concomitant]
     Route: 065

REACTIONS (4)
  - ANGINA PECTORIS [None]
  - CORONARY ARTERY OCCLUSION [None]
  - MYOCARDIAL INFARCTION [None]
  - VENTRICULAR FIBRILLATION [None]
